FAERS Safety Report 17477803 (Version 2)
Quarter: 2020Q1

REPORT INFORMATION
  Report Type: Spontaneous
  Country: US (occurrence: US)
  Receive Date: 20200229
  Receipt Date: 20200316
  Transmission Date: 20200409
  Serious: Yes (Hospitalization, Other)
  Sender: FDA-Public Use
  Company Number: US-ZYDUS-048185

PATIENT
  Sex: Female

DRUGS (4)
  1. TADALAFIL. [Concomitant]
     Active Substance: TADALAFIL
     Indication: PRODUCT USED FOR UNKNOWN INDICATION
     Route: 065
  2. SELEXIPAG [Concomitant]
     Active Substance: SELEXIPAG
     Indication: PRODUCT USED FOR UNKNOWN INDICATION
     Route: 065
  3. APIXABAN [Concomitant]
     Active Substance: APIXABAN
     Indication: PRODUCT USED FOR UNKNOWN INDICATION
     Route: 065
  4. BOSENTAN. [Suspect]
     Active Substance: BOSENTAN
     Indication: PULMONARY ARTERIAL HYPERTENSION
     Route: 048
     Dates: start: 20190708

REACTIONS (4)
  - Chest pain [Unknown]
  - Condition aggravated [Unknown]
  - Myocardial necrosis marker increased [Unknown]
  - Dyspnoea [Unknown]

NARRATIVE: CASE EVENT DATE: 2020
